FAERS Safety Report 10367751 (Version 1)
Quarter: 2014Q3

REPORT INFORMATION
  Report Type: Report from Study
  Country: CA (occurrence: CA)
  Receive Date: 20140807
  Receipt Date: 20140807
  Transmission Date: 20150326
  Serious: Yes (Hospitalization)
  Sender: FDA-Public Use
  Company Number: CA-JNJFOC-20140800658

PATIENT
  Age: 36 Year
  Sex: Female
  Weight: 62.9 kg

DRUGS (5)
  1. HYDROCORTISONE. [Concomitant]
     Active Substance: HYDROCORTISONE
     Indication: PREMEDICATION
     Route: 042
  2. WELLBUTRIN [Concomitant]
     Active Substance: BUPROPION HYDROCHLORIDE
     Route: 065
  3. DOXEPIN [Concomitant]
     Active Substance: DOXEPIN
     Route: 065
  4. REMICADE [Suspect]
     Active Substance: INFLIXIMAB
     Indication: CROHN^S DISEASE
     Dosage: 11TH INFUSION
     Route: 042
     Dates: end: 20140801
  5. REMICADE [Suspect]
     Active Substance: INFLIXIMAB
     Indication: CROHN^S DISEASE
     Route: 042
     Dates: start: 20130801

REACTIONS (7)
  - Blood pressure increased [Recovering/Resolving]
  - Hypersensitivity [Recovering/Resolving]
  - Tachycardia [Recovering/Resolving]
  - Dyskinesia [Recovering/Resolving]
  - Anxiety [Recovering/Resolving]
  - Infusion related reaction [Recovering/Resolving]
  - Chest discomfort [Recovering/Resolving]

NARRATIVE: CASE EVENT DATE: 20140801
